FAERS Safety Report 26118612 (Version 1)
Quarter: 2025Q4

REPORT INFORMATION
  Report Type: Spontaneous
  Country: CN (occurrence: CN)
  Receive Date: 20251203
  Receipt Date: 20251203
  Transmission Date: 20260117
  Serious: Yes (Life-Threatening)
  Sender: JIANGSU HENGRUI
  Company Number: CN-JIANGSU HENGRUI PHARMACEUTICALS CO., LTD.-H2025001208074

PATIENT
  Age: 70 Year

DRUGS (2)
  1. FONDAPARINUX SODIUM [Suspect]
     Active Substance: FONDAPARINUX SODIUM
     Indication: Deep vein thrombosis
     Dosage: 1.5 MG
  2. CHLORHEXIDINE [Suspect]
     Active Substance: CHLORHEXIDINE
     Indication: Infection prophylaxis
     Dosage: UNK

REACTIONS (1)
  - Kounis syndrome [Recovered/Resolved]
